FAERS Safety Report 20176992 (Version 1)
Quarter: 2021Q4

REPORT INFORMATION
  Report Type: Other
  Country: US (occurrence: US)
  Receive Date: 20211213
  Receipt Date: 20211213
  Transmission Date: 20220303
  Serious: Yes (Hospitalization)
  Sender: FDA-Public Use
  Company Number: US-NEUROCRINE BIOSCIENCES INC.-2021NBI07114

PATIENT

DRUGS (2)
  1. INGREZZA [Suspect]
     Active Substance: VALBENAZINE
     Indication: Tardive dyskinesia
     Dosage: 80 MILLIGRAM, QD
     Route: 048
     Dates: start: 20190913
  2. INGREZZA [Suspect]
     Active Substance: VALBENAZINE
     Indication: Schizophrenia
     Dosage: 40 MILLIGRAM, QD
     Route: 048
     Dates: start: 20190519, end: 20190814

REACTIONS (2)
  - Hospitalisation [Unknown]
  - Off label use [Unknown]
